FAERS Safety Report 5473017-6 (Version None)
Quarter: 2007Q4

REPORT INFORMATION
  Report Type: 
  Country: None (occurrence: None)
  Receive Date: 20071001
  Receipt Date: 20070226
  Transmission Date: 20080405
  Serious: No
  Sender: FDA-Public Use
  Company Number: US-ASTRAZENECA-2007UW03633

PATIENT
  Sex: Male

DRUGS (1)
  1. ARIMIDEX [Suspect]
     Indication: BREAST CANCER MALE

REACTIONS (1)
  - BLOOD TESTOSTERONE INCREASED [None]
